FAERS Safety Report 7444550-2 (Version None)
Quarter: 2011Q2

REPORT INFORMATION
  Report Type: 
  Country: None (occurrence: None)
  Receive Date: 20110427
  Receipt Date: 20110427
  Transmission Date: 20111010
  Serious: Yes (Other)
  Sender: FDA-Public Use
  Company Number: None

PATIENT
  Age: 30 Year
  Sex: Female
  Weight: 95.709 kg

DRUGS (1)
  1. MEDROXYPROGESTERONE [Suspect]
     Indication: CONTRACEPTION
     Dosage: 150 MG 3 MONTH
     Dates: start: 19970301, end: 20110301

REACTIONS (5)
  - BONE PAIN [None]
  - ALOPECIA [None]
  - ABORTION INDUCED [None]
  - WEIGHT INCREASED [None]
  - PAIN [None]
